FAERS Safety Report 4710067-9 (Version None)
Quarter: 2005Q3

REPORT INFORMATION
  Report Type: 
  Country: None (occurrence: None)
  Receive Date: 20050707
  Receipt Date: 20050624
  Transmission Date: 20060218
  Serious: Yes (Hospitalization, Disabling)
  Sender: FDA-Public Use
  Company Number: 4300345K05USA

PATIENT
  Age: 39 Year
  Sex: Male

DRUGS (2)
  1. NOVANTRONE [Suspect]
     Indication: MULTIPLE SCLEROSIS
     Dosage: 12 MG/M2 1 IN 3 MONTHS, INTRAVENOUS
     Route: 042
     Dates: start: 20010601, end: 20020601
  2. AVONEX [Suspect]
     Indication: MULTIPLE SCLEROSIS
     Dates: end: 20050409

REACTIONS (8)
  - AMNESIA [None]
  - COGNITIVE DISORDER [None]
  - CONVULSION [None]
  - DECUBITUS ULCER [None]
  - DEHYDRATION [None]
  - LOSS OF CONSCIOUSNESS [None]
  - MULTIPLE SCLEROSIS [None]
  - RHABDOMYOLYSIS [None]
